FAERS Safety Report 7090437-7 (Version None)
Quarter: 2010Q4

REPORT INFORMATION
  Report Type: 
  Country: None (occurrence: None)
  Receive Date: 20101109
  Receipt Date: 20100907
  Transmission Date: 20110411
  Serious: Yes (Hospitalization, Other)
  Sender: FDA-Public Use
  Company Number: US-BAYER-201016632NA

PATIENT
  Age: 17 Year
  Sex: Female
  Weight: 66 kg

DRUGS (7)
  1. YAZ [Suspect]
     Indication: PRODUCT USED FOR UNKNOWN INDICATION
     Route: 048
     Dates: start: 20071012, end: 20090119
  2. AMOXICILLIN [Concomitant]
     Dates: start: 20070507, end: 20070517
  3. AMOXICILLIN [Concomitant]
     Dates: start: 20071129, end: 20071208
  4. AMOXICILLIN [Concomitant]
     Dates: start: 20081209, end: 20081211
  5. AMOXICILLIN [Concomitant]
     Dates: start: 20091027, end: 20091106
  6. AMOXICILLIN [Concomitant]
     Dates: start: 20080402, end: 20080412
  7. PROVIGIL [Concomitant]
     Indication: ATTENTION DEFICIT/HYPERACTIVITY DISORDER
     Dates: start: 20071101

REACTIONS (3)
  - ARRHYTHMIA [None]
  - HEART RATE INCREASED [None]
  - PALPITATIONS [None]
